FAERS Safety Report 9886395 (Version 1)
Quarter: 2014Q1

REPORT INFORMATION
  Report Type: Spontaneous
  Country: FR (occurrence: FR)
  Receive Date: 20140210
  Receipt Date: 20140210
  Transmission Date: 20141002
  Serious: Yes (Hospitalization, Other)
  Sender: FDA-Public Use
  Company Number: FR-PFIZER INC-2014032676

PATIENT
  Age: 65 Year
  Sex: Male

DRUGS (6)
  1. TAHOR [Suspect]
     Indication: DYSLIPIDAEMIA
     Dosage: 10 MG, DAILY
     Route: 048
     Dates: end: 20140111
  2. TERBINAFINE [Suspect]
     Indication: FUNGAL INFECTION
     Dosage: 250 MG, DAILY
     Route: 048
     Dates: start: 201303, end: 20140111
  3. XATRAL [Suspect]
     Indication: BENIGN PROSTATIC HYPERPLASIA
     Dosage: 10 MG, DAILY
     Route: 048
     Dates: end: 20140111
  4. FINASTERIDE [Concomitant]
     Indication: BENIGN PROSTATIC HYPERPLASIA
     Dosage: 5 MG, DAILY
     Route: 048
  5. FINASTERIDE [Concomitant]
     Dosage: 10 MG, DAILY
     Route: 048
     Dates: start: 20140111
  6. HELICIDINE [Concomitant]
     Dosage: UNK

REACTIONS (3)
  - Pancreatitis acute [Recovering/Resolving]
  - Escherichia bacteraemia [Unknown]
  - Blood calcium decreased [Unknown]
